FAERS Safety Report 5956710-8 (Version None)
Quarter: 2008Q4

REPORT INFORMATION
  Report Type: 
  Country: None (occurrence: None)
  Receive Date: 20081104
  Receipt Date: 20080903
  Transmission Date: 20090506
  Serious: Yes (Disabling)
  Sender: FDA-Public Use
  Company Number: 565748

PATIENT
  Age: 70 Year
  Sex: Female
  Weight: 61.7 kg

DRUGS (1)
  1. BONIVA [Suspect]
     Indication: DRUG USE FOR UNKNOWN INDICATION
     Dosage: INTRAVENOUS
     Route: 042
     Dates: start: 20080423

REACTIONS (8)
  - ARTHRALGIA [None]
  - GROIN PAIN [None]
  - INFLUENZA LIKE ILLNESS [None]
  - JOINT RANGE OF MOTION DECREASED [None]
  - MUSCULOSKELETAL PAIN [None]
  - NECK PAIN [None]
  - PAIN IN EXTREMITY [None]
  - SWELLING [None]
